FAERS Safety Report 12671558 (Version 1)
Quarter: 2016Q3

REPORT INFORMATION
  Report Type: Spontaneous
  Country: CA (occurrence: CA)
  Receive Date: 20160822
  Receipt Date: 20160822
  Transmission Date: 20161109
  Serious: Yes (Other)
  Sender: FDA-Public Use
  Company Number: CA-MYLANLABS-2016M1034188

PATIENT

DRUGS (4)
  1. LAMOTRIGINE. [Suspect]
     Active Substance: LAMOTRIGINE
  2. PMS-LAMOTRIGINE [Suspect]
     Active Substance: LAMOTRIGINE
  3. MYLAN-LAMOTRIGINE 200MG [Suspect]
     Active Substance: LAMOTRIGINE
     Dosage: UNK
  4. ATENOLOL TEVA [Suspect]
     Active Substance: ATENOLOL

REACTIONS (4)
  - Rash [Unknown]
  - Pruritus [Unknown]
  - Product substitution issue [Unknown]
  - Urticaria [Unknown]
